FAERS Safety Report 8029662-7 (Version None)
Quarter: 2012Q1

REPORT INFORMATION
  Report Type: 
  Country: None (occurrence: None)
  Receive Date: 20120109
  Receipt Date: 20120103
  Transmission Date: 20120608
  Serious: Yes (Death, Other)
  Sender: FDA-Public Use
  Company Number: US-PFIZER INC-2010108988

PATIENT
  Sex: Female
  Weight: 44.717 kg

DRUGS (20)
  1. SEROQUEL [Concomitant]
     Dosage: 25 MG, EVERY HOUR OF SLEEP
     Dates: start: 20070820, end: 20070912
  2. VITAMIN D [Concomitant]
     Dosage: 50000 IU, MONTHLY
     Dates: start: 20070912
  3. VITAMIN D [Concomitant]
     Dosage: 2000 IU, 1X/DAY
  4. FUROSEMIDE [Concomitant]
     Dosage: 20 MG, 1X/DAY
  5. LIPITOR [Suspect]
     Dosage: HALF Q.D.
     Dates: start: 20050621
  6. ZITHROMAX [Concomitant]
     Dosage: AS DIRECTED
     Dates: start: 20110103
  7. TRIAMCINOLONE ACETONIDE W/NYSTATIN [Concomitant]
     Indication: RASH
     Dosage: APPLY TWICE DAILY AS NEEDED
     Dates: start: 20090930
  8. VITAMIN C [Concomitant]
     Dosage: 50000 IU, MONTHLY
  9. VITAMIN D [Concomitant]
     Dosage: 50000 IU, MONTHLY
     Dates: start: 20100514
  10. NORVASC [Suspect]
     Indication: HYPERTENSION
     Dosage: 5 MG, 2X/DAY
  11. LISINOPRIL [Concomitant]
     Dosage: 20 MG, 2X/DAY
     Dates: start: 20101220
  12. LASIX [Concomitant]
     Dosage: 20 MG, 1X/DAY
     Route: 048
     Dates: start: 20070827
  13. TYLENOL PM [Concomitant]
     Dosage: 2  EVERY HOUR OF SLEEP
     Route: 048
     Dates: start: 20070912
  14. LISINOPRIL [Concomitant]
     Dosage: 20 MG, 1X/DAY
  15. ACETYLSALICYLIC ACID [Concomitant]
     Dosage: 81 MG, 1X/DAY
  16. TRIAMCINOLONE ACETONIDE W/NYSTATIN [Concomitant]
     Dosage: UNK
     Dates: start: 20090930
  17. ULTRAM [Concomitant]
     Dosage: 50 MG, AS NEEDED
  18. TOPROL-XL [Concomitant]
     Dosage: 50 MG, 1X/DAY
     Dates: start: 20050621, end: 20100903
  19. CLONAZEPAM [Concomitant]
     Dosage: 0.5 MG, HALF TABLET EVERY HOUR OF SLEEP
     Dates: start: 20110714
  20. LIPITOR [Suspect]
     Indication: HYPERCHOLESTEROLAEMIA
     Dosage: 10 MG, 1X/DAY
     Route: 048
     Dates: start: 20050621

REACTIONS (11)
  - URINARY TRACT INFECTION [None]
  - DEATH [None]
  - HYPERTENSION [None]
  - INSOMNIA [None]
  - URINARY INCONTINENCE [None]
  - HALLUCINATION [None]
  - HEADACHE [None]
  - AMNESIA [None]
  - FALL [None]
  - CONFUSIONAL STATE [None]
  - HYPERCHOLESTEROLAEMIA [None]
